FAERS Safety Report 15674995 (Version 1)
Quarter: 2018Q4

REPORT INFORMATION
  Report Type: Spontaneous
  Country: US (occurrence: US)
  Receive Date: 20181129
  Receipt Date: 20181129
  Transmission Date: 20190205
  Serious: Yes (Other)
  Sender: FDA-Public Use
  Company Number: None

PATIENT
  Age: 42 Year
  Sex: Female

DRUGS (1)
  1. BLISTEX FRUIT SMOOTHIES [Suspect]
     Active Substance: DIMETHICONE\OCTINOXATE\OCTISALATE
     Indication: LIP DRY
     Dosage: ?          OTHER STRENGTH:.13;?
     Route: 061
     Dates: start: 20181129, end: 20181129

REACTIONS (1)
  - Hypersensitivity [None]

NARRATIVE: CASE EVENT DATE: 20181129
